FAERS Safety Report 9097534 (Version 1)
Quarter: 2013Q1

REPORT INFORMATION
  Report Type: Report from Study
  Country: FR (occurrence: FR)
  Receive Date: 20130212
  Receipt Date: 20130212
  Transmission Date: 20140127
  Serious: Yes (Hospitalization)
  Sender: FDA-Public Use
  Company Number: FR-ROCHE-1189468

PATIENT
  Age: 75 Year
  Sex: Male
  Weight: 73 kg

DRUGS (9)
  1. RITUXIMAB [Suspect]
     Indication: CHRONIC LYMPHOCYTIC LEUKAEMIA
     Dosage: CYCLE 4, DAY 9, LAST DOSE PRIOR TO SAE: TAKEN ON 07/JAN/2013
     Route: 042
     Dates: start: 20121015
  2. RITUXIMAB [Suspect]
     Dosage: C1+C2, DAY 15, LAST DOSE PRIORTO SAE:26/NOV/2012
     Route: 042
     Dates: start: 20121029
  3. CYCLOPHOSPHAMIDE [Suspect]
     Indication: CHRONIC LYMPHOCYTIC LEUKAEMIA
     Dosage: DAY 1,2,3 OF EACH CYCLE
     Route: 048
     Dates: start: 20121016, end: 20130109
  4. FLUDARABINE [Suspect]
     Indication: CHRONIC LYMPHOCYTIC LEUKAEMIA
     Dosage: DAY 1,2,3 OF EACH CYCLE
     Route: 048
     Dates: start: 20121016, end: 20130109
  5. PRESTOLE [Concomitant]
     Indication: HYPERTENSION
     Route: 048
  6. BACTRIM FORTE [Concomitant]
     Indication: INFECTION PROPHYLAXIS
     Route: 048
     Dates: start: 20121015
  7. ORACILLINE [Concomitant]
     Indication: INFECTION PROPHYLAXIS
     Dosage: 1 MVI
     Route: 048
     Dates: start: 20121015
  8. ZELITREX [Concomitant]
     Indication: INFECTION PROPHYLAXIS
     Route: 048
     Dates: start: 20121015
  9. LEDERFOLIN [Concomitant]
     Indication: ANAEMIA PROPHYLAXIS
     Route: 065

REACTIONS (1)
  - Lung disorder [Recovered/Resolved]
